FAERS Safety Report 8342144-8 (Version None)
Quarter: 2012Q2

REPORT INFORMATION
  Report Type: 
  Country: None (occurrence: None)
  Receive Date: 20120507
  Receipt Date: 20120420
  Transmission Date: 20120825
  Serious: Yes (Hospitalization)
  Sender: FDA-Public Use
  Company Number: US-BAXTER-2012BAX003589

PATIENT
  Sex: Female

DRUGS (2)
  1. DIANEAL [Suspect]
     Route: 033
     Dates: start: 20080728
  2. DIANEAL [Suspect]
     Route: 033
     Dates: start: 20080728

REACTIONS (3)
  - PNEUMONIA [None]
  - FUNGAL PERITONITIS [None]
  - PERITONITIS BACTERIAL [None]
